FAERS Safety Report 20161356 (Version 2)
Quarter: 2021Q4

REPORT INFORMATION
  Report Type: Spontaneous
  Country: HK (occurrence: None)
  Receive Date: 20211208
  Receipt Date: 20211222
  Transmission Date: 20220304
  Serious: Yes (Other)
  Sender: FDA-Public Use
  Company Number: HK-Eisai Medical Research-EC-2021-104265

PATIENT
  Age: 57 Year
  Sex: Female

DRUGS (3)
  1. LENVIMA [Suspect]
     Active Substance: LENVATINIB
     Indication: Endometrial cancer metastatic
     Route: 048
     Dates: start: 202102, end: 2021
  2. LENVIMA [Suspect]
     Active Substance: LENVATINIB
     Route: 048
     Dates: start: 2021
  3. KEYTRUDA [Suspect]
     Active Substance: PEMBROLIZUMAB
     Indication: Endometrial cancer metastatic
     Route: 041
     Dates: start: 202102

REACTIONS (7)
  - Glucocorticoid deficiency [Unknown]
  - Hypothyroidism [Recovering/Resolving]
  - Headache [Recovered/Resolved]
  - Stomatitis [Recovered/Resolved]
  - Odynophagia [Unknown]
  - Hypertension [Recovering/Resolving]
  - Dry skin [Unknown]

NARRATIVE: CASE EVENT DATE: 20210201
